FAERS Safety Report 7607697-3 (Version None)
Quarter: 2011Q3

REPORT INFORMATION
  Report Type: 
  Country: None (occurrence: None)
  Receive Date: 20110713
  Receipt Date: 20110523
  Transmission Date: 20111222
  Serious: Yes (Hospitalization, Other)
  Sender: FDA-Public Use
  Company Number: PHHY2011US16974

PATIENT
  Sex: Female

DRUGS (2)
  1. DIOVAN [Suspect]
     Dosage: 160 MG, QD
  2. PREMARIN [Concomitant]

REACTIONS (10)
  - HYPERTENSION [None]
  - DIZZINESS [None]
  - CHEST PAIN [None]
  - STRESS [None]
  - HALLUCINATION [None]
  - NERVOUSNESS [None]
  - LIMB DISCOMFORT [None]
  - MALAISE [None]
  - MYOCARDIAL INFARCTION [None]
  - TREMOR [None]
